FAERS Safety Report 12306549 (Version 2)
Quarter: 2016Q2

REPORT INFORMATION
  Report Type: Spontaneous
  Country: BR (occurrence: BR)
  Receive Date: 20160426
  Receipt Date: 20160512
  Transmission Date: 20160815
  Serious: Yes (Other)
  Sender: FDA-Public Use
  Company Number: BR-BAYER-2016-080217

PATIENT
  Age: 38 Year
  Sex: Female
  Weight: 84 kg

DRUGS (1)
  1. MIRENA [Suspect]
     Active Substance: LEVONORGESTREL
     Indication: CONTRACEPTION
     Dosage: 20 MCG/24HR, CONT
     Route: 015
     Dates: start: 20160415, end: 20160420

REACTIONS (3)
  - Paraesthesia [Recovered/Resolved with Sequelae]
  - Oedema [None]
  - Burning sensation [None]
